FAERS Safety Report 9388020 (Version 1)
Quarter: 2013Q3

REPORT INFORMATION
  Report Type: Spontaneous
  Country: BR (occurrence: BR)
  Receive Date: 20130708
  Receipt Date: 20130708
  Transmission Date: 20140515
  Serious: Yes (Other)
  Sender: FDA-Public Use
  Company Number: BR-VERTEX PHARMACEUTICALS INC-2013-007732

PATIENT
  Sex: Male

DRUGS (1)
  1. INCIVO [Suspect]
     Indication: HEPATITIS C
     Dosage: UNK, TID
     Route: 065
     Dates: start: 201306, end: 201306

REACTIONS (2)
  - Anorectal disorder [Recovered/Resolved]
  - Anal pruritus [Recovered/Resolved]
